FAERS Safety Report 8769396 (Version 1)
Quarter: 2012Q4

REPORT INFORMATION
  Report Type: 
  Country: US (occurrence: US)
  Receive Date: 20120904
  Receipt Date: 20120904
  Transmission Date: 20130627
  Serious: Yes (Other)
  Sender: FDA-Public Use
  Company Number: US-ASTRAZENECA-2012SE64675

PATIENT
  Age: 79 Year
  Sex: Female

DRUGS (1)
  1. NEXIUM [Suspect]
     Route: 048

REACTIONS (8)
  - Ulcer [Unknown]
  - Osteoarthritis [Unknown]
  - Pain [Unknown]
  - Hyperglycaemia [Unknown]
  - Glaucoma [Unknown]
  - Bone pain [Unknown]
  - General physical health deterioration [Unknown]
  - Off label use [Unknown]
